FAERS Safety Report 23375605 (Version 6)
Quarter: 2024Q3

REPORT INFORMATION
  Report Type: Spontaneous
  Country: US (occurrence: US)
  Receive Date: 20240107
  Receipt Date: 20240919
  Transmission Date: 20241017
  Serious: No
  Sender: BAUSCH AND LOMB
  Company Number: US-BAUSCHBL-2023BNL005435

PATIENT
  Age: 65 Year
  Sex: Female
  Weight: 74.84 kg

DRUGS (2)
  1. DORZOLAMIDE HYDROCHLORIDE\TIMOLOL MALEATE [Suspect]
     Active Substance: DORZOLAMIDE HYDROCHLORIDE\TIMOLOL MALEATE
     Indication: Glaucoma
     Route: 047
  2. DIAMOX SEQUELS [Concomitant]
     Active Substance: ACETAZOLAMIDE
     Indication: Product used for unknown indication
     Route: 065

REACTIONS (13)
  - Visual impairment [Unknown]
  - Pain [Unknown]
  - Vision blurred [Unknown]
  - Drug ineffective [Unknown]
  - Poor quality product administered [Unknown]
  - Product container seal issue [Unknown]
  - Suspected product tampering [Unknown]
  - Physical product label issue [Unknown]
  - Product container issue [Unknown]
  - Product complaint [Unknown]
  - Product quality issue [Unknown]
  - Product expiration date issue [Unknown]
  - Liquid product physical issue [Unknown]
